FAERS Safety Report 7107131-6 (Version None)
Quarter: 2010Q4

REPORT INFORMATION
  Report Type: 
  Country: None (occurrence: None)
  Receive Date: 20101116
  Receipt Date: 20101007
  Transmission Date: 20110411
  Serious: No
  Sender: FDA-Public Use
  Company Number: US-ABBOTT-10P-163-0677540-00

PATIENT
  Sex: Female
  Weight: 79.45 kg

DRUGS (5)
  1. SIMCOR [Suspect]
     Indication: BLOOD CHOLESTEROL INCREASED
     Dosage: 500/20
     Dates: start: 20100101
  2. LISINOPRIL [Concomitant]
     Indication: BLOOD PRESSURE
  3. DYAZIDE [Concomitant]
     Indication: BLOOD PRESSURE
     Dosage: 37.5/20
  4. SYNTHROID [Concomitant]
     Indication: HYPOTHYROIDISM
  5. FLEXERIL [Concomitant]
     Indication: PRODUCT USED FOR UNKNOWN INDICATION
     Dosage: PRN

REACTIONS (1)
  - FLUSHING [None]
